FAERS Safety Report 23367497 (Version 2)
Quarter: 2024Q1

REPORT INFORMATION
  Report Type: Spontaneous
  Country: US (occurrence: US)
  Receive Date: 20240104
  Receipt Date: 20240110
  Transmission Date: 20240410
  Serious: Yes (Life-Threatening, Hospitalization, Other)
  Sender: FDA-Public Use
  Company Number: US-PFIZER INC-PV202400000015

PATIENT
  Age: 56 Year
  Sex: Male

DRUGS (4)
  1. LIDOCAINE HYDROCHLORIDE [Suspect]
     Active Substance: LIDOCAINE HYDROCHLORIDE
     Dosage: UNK
  2. STREPTOMYCIN [Suspect]
     Active Substance: STREPTOMYCIN SULFATE
     Dosage: 0.5 G, 2X/DAY, FOR FOUR DAYS
  3. GALLAMINE [Suspect]
     Active Substance: GALLAMINE
     Indication: Muscle relaxant therapy
     Dosage: 120 MG IN DIVIDED DOSES WAS ADMINISTERED
  4. CEPHALOTHIN [Concomitant]
     Active Substance: CEPHALOTHIN
     Dosage: 2 G, 4X/DAY

REACTIONS (1)
  - Paralysis [Unknown]
